FAERS Safety Report 21981185 (Version 3)
Quarter: 2023Q1

REPORT INFORMATION
  Report Type: Report from Study
  Country: US (occurrence: US)
  Receive Date: 20230211
  Receipt Date: 20230223
  Transmission Date: 20230418
  Serious: No
  Sender: FDA-Public Use
  Company Number: US-002147023-NVSC2023US027779

PATIENT
  Age: 65 Year
  Sex: Female

DRUGS (1)
  1. GLATOPA [Suspect]
     Active Substance: GLATIRAMER ACETATE
     Indication: Product used for unknown indication
     Dosage: 20 MG, QD
     Route: 058
     Dates: start: 200901

REACTIONS (8)
  - Paraesthesia oral [Recovering/Resolving]
  - Chest discomfort [Recovering/Resolving]
  - Heart rate increased [Unknown]
  - Flushing [Unknown]
  - Dyspnoea [Recovering/Resolving]
  - Feeling hot [Unknown]
  - Injection site erythema [Unknown]
  - Tremor [Unknown]

NARRATIVE: CASE EVENT DATE: 20230204
